FAERS Safety Report 7774822-3 (Version None)
Quarter: 2011Q3

REPORT INFORMATION
  Report Type: 
  Country: None (occurrence: None)
  Receive Date: 20110923
  Receipt Date: 20110915
  Transmission Date: 20111222
  Serious: Yes (Hospitalization)
  Sender: FDA-Public Use
  Company Number: DE-ROCHE-804070

PATIENT
  Age: 60 Year
  Sex: Female

DRUGS (3)
  1. CARBOPLATIN [Suspect]
     Route: 065
  2. TAXOTERE [Suspect]
     Route: 065
  3. HERCEPTIN [Suspect]
     Route: 065

REACTIONS (1)
  - SYNCOPE [None]
